FAERS Safety Report 10367160 (Version 3)
Quarter: 2015Q1

REPORT INFORMATION
  Report Type: Report from Study
  Country: BR (occurrence: BR)
  Receive Date: 20140807
  Receipt Date: 20150202
  Transmission Date: 20150720
  Serious: Yes (Hospitalization, Other)
  Sender: FDA-Public Use
  Company Number: BR-BRISTOL-MYERS SQUIBB COMPANY-21275284

PATIENT
  Age: 68 Year
  Sex: Female

DRUGS (1)
  1. ABATACEPT [Suspect]
     Active Substance: ABATACEPT
     Indication: RHEUMATOID ARTHRITIS
     Dosage: RECENT INF:05JUL2014.05AUG14
     Route: 042

REACTIONS (4)
  - Ankle fracture [Recovered/Resolved]
  - Road traffic accident [Unknown]
  - Ankle operation [Recovered/Resolved with Sequelae]
  - Foot fracture [Recovering/Resolving]

NARRATIVE: CASE EVENT DATE: 20140730
